FAERS Safety Report 11292616 (Version 1)
Quarter: 2015Q3

REPORT INFORMATION
  Report Type: Spontaneous
  Country: JP (occurrence: JP)
  Receive Date: 20150722
  Receipt Date: 20150722
  Transmission Date: 20151125
  Serious: Yes (Life-Threatening, Hospitalization, Other)
  Sender: FDA-Public Use
  Company Number: JP-GLAXOSMITHKLINE-JP2015JPN084032

PATIENT
  Age: 89 Year
  Sex: Female
  Weight: 40 kg

DRUGS (24)
  1. ZOVIRAX [Suspect]
     Active Substance: ACYCLOVIR
     Indication: HERPES ZOSTER
     Dosage: 250 MG, BID
     Route: 041
     Dates: start: 20110925, end: 20110925
  2. VALTREX [Suspect]
     Active Substance: VALACYCLOVIR HYDROCHLORIDE
     Indication: HERPES ZOSTER
     Dosage: UNK
     Route: 048
     Dates: start: 20110925, end: 201109
  3. SOLU-CORTEF [Concomitant]
     Active Substance: HYDROCORTISONE SODIUM SUCCINATE
     Dosage: 100 MG, PRN
  4. ARTIST [Concomitant]
     Active Substance: CARVEDILOL
     Dosage: 1.25 MG, 1D
  5. EPINASTINE HYDROCHLORIDE. [Concomitant]
     Active Substance: EPINASTINE HYDROCHLORIDE
     Dosage: 20 MG, 1D
  6. CALBLOCK [Concomitant]
     Active Substance: AZELNIDIPINE
     Dosage: 16 MG, 1D
  7. GASCON [Concomitant]
     Active Substance: DIMETHICONE
     Dosage: 120 MG, 1D
  8. VOLTAREN [Concomitant]
     Active Substance: DICLOFENAC SODIUM
     Dosage: 25 MG, PRN
  9. UNIPHYL LA [Concomitant]
     Active Substance: THEOPHYLLINE ANHYDROUS
     Dosage: 200 MG, 1D
  10. MONTELUKAST [Concomitant]
     Active Substance: MONTELUKAST SODIUM
     Dosage: 10 MG, 1D
  11. RIMATIL [Concomitant]
     Active Substance: BUCILLAMINE
     Dosage: 300 MG, 1D
  12. ARASENA-A [Concomitant]
     Active Substance: VIDARABINE
     Dosage: UNK
  13. SIGMART [Concomitant]
     Active Substance: NICORANDIL
     Dosage: 15 MG, 1D
  14. ALINAMIN F [Concomitant]
     Active Substance: FURSULTIAMINE HYDROCHLORIDE
     Dosage: 50 MG, 1D
  15. ALDACTONE A [Concomitant]
     Active Substance: SPIRONOLACTONE
     Dosage: 2 DF, 1D
  16. SALSONIN [Concomitant]
     Dosage: 0.25 MG, PRN
  17. DIPROPHYLLINE [Concomitant]
     Active Substance: DYPHYLLINE
     Dosage: 300 MG, PRN
  18. METILDIGOXIN [Concomitant]
     Active Substance: METILDIGOXIN
     Dosage: 0.1 MG, 1D
  19. MAGNESIUM OXIDE. [Concomitant]
     Active Substance: MAGNESIUM OXIDE
     Dosage: 1 G, 1D
  20. VASOLAN [Concomitant]
     Active Substance: VERAPAMIL HYDROCHLORIDE
     Dosage: 120 MG, 1D
  21. TAKEPRON [Concomitant]
     Active Substance: LANSOPRAZOLE
     Dosage: 15 MG, 1D
  22. FUROSEMIDE. [Concomitant]
     Active Substance: FUROSEMIDE
     Dosage: 40 MG, PRN
  23. NU-LOTAN [Concomitant]
     Active Substance: LOSARTAN POTASSIUM
     Dosage: 50 MG, 1D
  24. PREDNISOLONE. [Concomitant]
     Active Substance: PREDNISOLONE
     Dosage: 10 MG, 1D

REACTIONS (7)
  - Overdose [Unknown]
  - Toxicity to various agents [Unknown]
  - Acute kidney injury [Recovering/Resolving]
  - Cardiac failure [Unknown]
  - Dyspnoea [Unknown]
  - Altered state of consciousness [Unknown]
  - Depressed level of consciousness [Unknown]

NARRATIVE: CASE EVENT DATE: 20110926
